FAERS Safety Report 4724085-8 (Version None)
Quarter: 2005Q3

REPORT INFORMATION
  Report Type: 
  Country: None (occurrence: None)
  Receive Date: 20050725
  Receipt Date: 20050720
  Transmission Date: 20060218
  Serious: Yes (Other)
  Sender: FDA-Public Use
  Company Number: DE-MERCK-0507DEU00164

PATIENT
  Sex: Male

DRUGS (1)
  1. COZAAR [Suspect]
     Route: 048
     Dates: start: 20020101

REACTIONS (4)
  - BLINDNESS UNILATERAL [None]
  - CSF OLIGOCLONAL BAND PRESENT [None]
  - INFLUENZA [None]
  - OPTIC NEURITIS RETROBULBAR [None]
